FAERS Safety Report 9754844 (Version 1)
Quarter: 2013Q4

REPORT INFORMATION
  Report Type: Spontaneous
  Country: US (occurrence: US)
  Receive Date: 20131213
  Receipt Date: 20131213
  Transmission Date: 20140711
  Serious: No
  Sender: FDA-Public Use
  Company Number: US-GLAXOSMITHKLINE-A1007303A

PATIENT
  Age: 57 Year
  Sex: Male

DRUGS (2)
  1. NICODERM CQ 14MG [Suspect]
     Indication: EX-TOBACCO USER
  2. NICODERM CQ 21MG [Suspect]
     Indication: EX-TOBACCO USER

REACTIONS (3)
  - Application site pruritus [Unknown]
  - Drug ineffective [Unknown]
  - Drug administration error [Unknown]
